FAERS Safety Report 9993463 (Version 1)
Quarter: 2014Q1

REPORT INFORMATION
  Report Type: Spontaneous
  Country: GB (occurrence: GB)
  Receive Date: 20140310
  Receipt Date: 20140310
  Transmission Date: 20141002
  Serious: Yes (Disabling)
  Sender: FDA-Public Use
  Company Number: GB-MYLANLABS-2014S1004415

PATIENT
  Age: 36 Year
  Sex: Female
  Weight: 62 kg

DRUGS (1)
  1. CITALOPRAM [Suspect]

REACTIONS (4)
  - VIIth nerve paralysis [Recovering/Resolving]
  - Facial paresis [Recovering/Resolving]
  - Ophthalmoplegia [Recovering/Resolving]
  - Dysgeusia [Recovering/Resolving]
